FAERS Safety Report 8380650-0 (Version None)
Quarter: 2012Q2

REPORT INFORMATION
  Report Type: 
  Country: None (occurrence: None)
  Receive Date: 20120523
  Receipt Date: 20120517
  Transmission Date: 20120825
  Serious: Yes (Disabling, Other)
  Sender: FDA-Public Use
  Company Number: CA-GILEAD-2012-0052949

PATIENT
  Sex: Female

DRUGS (17)
  1. INFLUENZA VIRUS VACCINE POLYVALENT [Suspect]
     Indication: PROPHYLAXIS
     Route: 065
     Dates: start: 20110101, end: 20110101
  2. FUROSEMIDE [Concomitant]
     Indication: HYPERTENSION
     Dosage: 40MG UNKNOWN
  3. ACTONEL [Concomitant]
     Dosage: 150MG MONTHLY
  4. ACTONEL [Concomitant]
     Dosage: UNK
  5. METOPROLOL [Concomitant]
     Dosage: 50MG TWICE PER DAY
  6. VENTOLIN HFA [Concomitant]
  7. L-THYROXINE                        /00068002/ [Concomitant]
     Dosage: .05MG TWICE PER DAY
  8. AMBRISENTAN [Suspect]
     Indication: PULMONARY HYPERTENSION
     Dosage: 5MG PER DAY
     Route: 048
     Dates: start: 20111020, end: 20111104
  9. OXYGEN [Concomitant]
  10. SYMBICORT [Concomitant]
     Dosage: 1U TWICE PER DAY
     Dates: start: 20100701
  11. METOPROLOL [Concomitant]
     Indication: ATRIAL FIBRILLATION
     Dosage: UNK
  12. WARFARIN SODIUM [Concomitant]
     Dosage: .5MG PER DAY
  13. WARFARIN SODIUM [Concomitant]
     Indication: ATRIAL FIBRILLATION
     Dosage: UNK
  14. SYMBICORT [Concomitant]
     Dosage: UNK DF, UNK
  15. SPIRIVA [Concomitant]
     Dosage: 18MCG PER DAY
  16. SPIRIVA [Concomitant]
     Dosage: 18MCG PER DAY
  17. LASIX [Concomitant]
     Dosage: 40MG IN THE MORNING

REACTIONS (4)
  - INCREASED UPPER AIRWAY SECRETION [None]
  - PRODUCTIVE COUGH [None]
  - OEDEMA PERIPHERAL [None]
  - DYSPNOEA [None]
